FAERS Safety Report 8397017-1 (Version None)
Quarter: 2012Q2

REPORT INFORMATION
  Report Type: 
  Country: None (occurrence: None)
  Receive Date: 20120530
  Receipt Date: 20120522
  Transmission Date: 20120825
  Serious: Yes (Hospitalization)
  Sender: FDA-Public Use
  Company Number: US-B.I. PHARMACEUTICALS,INC./RIDGEFIELD-2012-BP-10172BP

PATIENT
  Sex: Male
  Weight: 96.16 kg

DRUGS (6)
  1. PRADAXA [Suspect]
     Indication: CEREBROVASCULAR ACCIDENT PROPHYLAXIS
     Dosage: 300 MG
     Route: 048
  2. METFORMIN HCL [Concomitant]
     Indication: DIABETES MELLITUS
     Dosage: 2000 MG
  3. PRADAXA [Suspect]
     Indication: ATRIAL FIBRILLATION
  4. SOTALOL HCL [Concomitant]
     Indication: ATRIAL FIBRILLATION
     Dosage: 160 MG
  5. CYMBALTA [Concomitant]
     Dosage: 120 MG
  6. RAZADYNE [Concomitant]
     Dosage: 16 MG

REACTIONS (1)
  - TRANSIENT ISCHAEMIC ATTACK [None]
